FAERS Safety Report 20967949 (Version 2)
Quarter: 2022Q2

REPORT INFORMATION
  Report Type: Spontaneous
  Country: PL (occurrence: None)
  Receive Date: 20220616
  Receipt Date: 20220624
  Transmission Date: 20220721
  Serious: Yes (Other)
  Sender: FDA-Public Use
  Company Number: PL-Merck Healthcare KGaA-9329316

PATIENT
  Age: 37 Year
  Sex: Female

DRUGS (1)
  1. CLADRIBINE [Suspect]
     Active Substance: CLADRIBINE
     Indication: Product used for unknown indication
     Dosage: MONTH ONE THERAPY

REACTIONS (3)
  - Transaminases increased [Unknown]
  - Pruritus [Unknown]
  - Lymphocyte count decreased [Unknown]
